FAERS Safety Report 11238490 (Version 1)
Quarter: 2015Q3

REPORT INFORMATION
  Report Type: Spontaneous
  Country: CA (occurrence: CA)
  Receive Date: 20150705
  Receipt Date: 20150705
  Transmission Date: 20151125
  Serious: Yes (Hospitalization, Disabling)
  Sender: FDA-Public Use
  Company Number: CA-TEVA-575511ACC

PATIENT
  Sex: Male
  Weight: 116.68 kg

DRUGS (1)
  1. RISPERIDONE. [Suspect]
     Active Substance: RISPERIDONE
     Indication: SCHIZOPHRENIA
     Dosage: 4 MILLIGRAM DAILY;
     Route: 048

REACTIONS (3)
  - Product substitution issue [Recovered/Resolved]
  - Dysphoria [Recovered/Resolved]
  - Cognitive disorder [Recovered/Resolved]
